FAERS Safety Report 5070038-2 (Version None)
Quarter: 2006Q3

REPORT INFORMATION
  Report Type: 
  Country: None (occurrence: None)
  Receive Date: 20060731
  Receipt Date: 20060718
  Transmission Date: 20061208
  Serious: Yes (Other)
  Sender: FDA-Public Use
  Company Number: 2006088941

PATIENT
  Sex: Female

DRUGS (3)
  1. LYRICA [Suspect]
     Indication: DRUG USE FOR UNKNOWN INDICATION
     Dosage: (150 MG)
     Dates: start: 20060707, end: 20060714
  2. XANAX [Suspect]
     Indication: DRUG USE FOR UNKNOWN INDICATION
  3. PAROXETINE HCL [Suspect]
     Indication: DRUG USE FOR UNKNOWN INDICATION

REACTIONS (5)
  - COORDINATION ABNORMAL [None]
  - DIZZINESS [None]
  - HYPOTONIA [None]
  - URINARY INCONTINENCE [None]
  - VERTIGO [None]
